FAERS Safety Report 17997452 (Version 2)
Quarter: 2020Q3

REPORT INFORMATION
  Report Type: Report from Study
  Country: US (occurrence: US)
  Receive Date: 20200708
  Receipt Date: 20200722
  Transmission Date: 20201103
  Serious: Yes (Hospitalization)
  Sender: FDA-Public Use
  Company Number: US-ACTELION-A-NJ2020-206836

PATIENT
  Sex: Female
  Weight: 94.79 kg

DRUGS (5)
  1. OPSUMIT [Suspect]
     Active Substance: MACITENTAN
     Indication: PULMONARY HYPERTENSION
     Dosage: 10 MG, QD
     Route: 048
  2. ADCIRCA [Concomitant]
     Active Substance: TADALAFIL
  3. FLOLAN [Concomitant]
     Active Substance: EPOPROSTENOL SODIUM
  4. OPSUMIT [Suspect]
     Active Substance: MACITENTAN
     Dosage: 10 UNK
     Route: 048
  5. METHOTREXATE. [Suspect]
     Active Substance: METHOTREXATE
     Indication: PRODUCT USED FOR UNKNOWN INDICATION
     Dosage: 7.5 MG, Q1WEEK
     Route: 065

REACTIONS (8)
  - Alanine aminotransferase increased [Recovered/Resolved]
  - Myocarditis [Recovered/Resolved]
  - Blood bilirubin increased [Recovered/Resolved]
  - Lung disorder [Recovered/Resolved]
  - Aspartate aminotransferase increased [Recovered/Resolved]
  - Liver function test increased [Recovered/Resolved]
  - Dyspnoea [Recovered/Resolved]
  - Right ventricular failure [Recovered/Resolved]
